FAERS Safety Report 6953582-X (Version None)
Quarter: 2010Q3

REPORT INFORMATION
  Report Type: 
  Country: None (occurrence: None)
  Receive Date: 20100829
  Receipt Date: 20100609
  Transmission Date: 20110219
  Serious: No
  Sender: FDA-Public Use
  Company Number: US-ABBOTT-10P-163-0651335-00

PATIENT
  Sex: Female
  Weight: 84.898 kg

DRUGS (8)
  1. NIASPAN [Suspect]
     Indication: BLOOD CHOLESTEROL INCREASED
     Dosage: AT BED TIME
     Dates: start: 20100527
  2. LORAZEPAM [Interacting]
     Indication: PRODUCT USED FOR UNKNOWN INDICATION
  3. CYTOMEL [Interacting]
     Indication: HYPOTHYROIDISM
  4. OXYBUTYNIN [Interacting]
     Indication: PRODUCT USED FOR UNKNOWN INDICATION
  5. VENLAFAXINE [Interacting]
     Indication: ANXIETY
  6. SERTRALINE HYDROCHLORIDE [Interacting]
     Indication: ANXIETY
  7. ASPIRIN [Concomitant]
     Indication: PRODUCT USED FOR UNKNOWN INDICATION
     Dosage: 15 TO 20 MINUTES BEFORE NIASPAN COATED
  8. VITAMIN D3 [Concomitant]
     Indication: PRODUCT USED FOR UNKNOWN INDICATION

REACTIONS (3)
  - ANXIETY DISORDER [None]
  - DRUG INTERACTION [None]
  - FLUSHING [None]
